FAERS Safety Report 24127629 (Version 1)
Quarter: 2024Q3

REPORT INFORMATION
  Report Type: Report from Study
  Country: US (occurrence: US)
  Receive Date: 20240723
  Receipt Date: 20240723
  Transmission Date: 20241017
  Serious: No
  Sender: VANDA PHARMACEUTICALS
  Company Number: US-VANDA PHARMACEUTICALS, INC-2023TASUS006941

PATIENT
  Sex: Female
  Weight: 113.38 kg

DRUGS (2)
  1. HETLIOZ [Suspect]
     Active Substance: TASIMELTEON
     Indication: Smith-Magenis syndrome
     Dosage: 20 MILLIGRAM, QD
     Route: 048
  2. HETLIOZ [Suspect]
     Active Substance: TASIMELTEON
     Indication: Sleep disorder

REACTIONS (3)
  - Behaviour disorder [Unknown]
  - Regurgitation [Unknown]
  - Wrong technique in product usage process [Unknown]
